FAERS Safety Report 10205343 (Version 1)
Quarter: 2014Q2

REPORT INFORMATION
  Report Type: Spontaneous
  Country: US (occurrence: US)
  Receive Date: 20140529
  Receipt Date: 20140529
  Transmission Date: 20141212
  Serious: No
  Sender: FDA-Public Use
  Company Number: US-SA-2014SA041542

PATIENT
  Age: 50 Year
  Sex: Female

DRUGS (4)
  1. SOLOSTAR [Suspect]
     Indication: DEVICE THERAPY
     Dates: start: 2012
  2. LANTUS SOLOSTAR [Suspect]
     Indication: TYPE 1 DIABETES MELLITUS
     Dosage: DOSE:22 UNIT(S)
     Route: 065
     Dates: start: 2012
  3. NOVOLOG [Concomitant]
  4. NPH INSULIN [Concomitant]

REACTIONS (2)
  - Blood glucose increased [Unknown]
  - Drug administration error [Unknown]
